FAERS Safety Report 12966051 (Version 2)
Quarter: 2016Q4

REPORT INFORMATION
  Report Type: Spontaneous
  Country: ES (occurrence: ES)
  Receive Date: 20161122
  Receipt Date: 20161129
  Transmission Date: 20170207
  Serious: Yes (Hospitalization, Other)
  Sender: FDA-Public Use
  Company Number: ES-ABBVIE-16P-144-1788319-00

PATIENT
  Age: 72 Year
  Sex: Male

DRUGS (2)
  1. VIEKIRAX [Suspect]
     Active Substance: OMBITASVIR\PARITAPREVIR\RITONAVIR
     Indication: HEPATITIS C
     Route: 048
     Dates: start: 201610, end: 201611
  2. EXVIERA [Suspect]
     Active Substance: DASABUVIR
     Indication: HEPATITIS C
     Route: 048
     Dates: start: 201610, end: 201611

REACTIONS (3)
  - Confusional state [Recovering/Resolving]
  - Encephalopathy [Recovering/Resolving]
  - Hepatic encephalopathy [Unknown]

NARRATIVE: CASE EVENT DATE: 201610
